FAERS Safety Report 6214089-0 (Version None)
Quarter: 2009Q2

REPORT INFORMATION
  Report Type: 
  Country: None (occurrence: None)
  Receive Date: 20090604
  Receipt Date: 20090601
  Transmission Date: 20091009
  Serious: Yes (Other)
  Sender: FDA-Public Use
  Company Number: US-BRISTOL-MYERS SQUIBB COMPANY-14644306

PATIENT
  Age: 77 Year
  Sex: Female
  Weight: 60 kg

DRUGS (3)
  1. COUMADIN [Suspect]
  2. ENOXAPARIN SODIUM [Suspect]
     Indication: DENTAL CARE
     Dosage: ALSO GIVEN IN MAR2009 TWICE.FORM-SOLN FOR INJ.
     Dates: start: 20090201
  3. ENOXAPARIN SODIUM [Suspect]
     Indication: ANGIOGRAM
     Dosage: ALSO GIVEN IN MAR2009 TWICE.FORM-SOLN FOR INJ.
     Dates: start: 20090201

REACTIONS (2)
  - GINGIVAL BLEEDING [None]
  - RENAL FAILURE [None]
